FAERS Safety Report 5415493-0 (Version None)
Quarter: 2007Q3

REPORT INFORMATION
  Report Type: 
  Country: None (occurrence: None)
  Receive Date: 20070815
  Receipt Date: 20070802
  Transmission Date: 20080115
  Serious: Yes (Other)
  Sender: FDA-Public Use
  Company Number: JP-MERCK-0708USA01112

PATIENT
  Age: 56 Year
  Sex: Male

DRUGS (6)
  1. PEPCID [Suspect]
     Route: 048
     Dates: start: 20040401
  2. WARFARIN [Concomitant]
     Route: 048
     Dates: start: 20040401
  3. WARFARIN [Concomitant]
     Route: 048
     Dates: start: 20040701
  4. CANDESARTAN CILEXETIL [Concomitant]
     Route: 048
     Dates: start: 20040401
  5. DIPYRIDAMOLE [Concomitant]
     Route: 065
     Dates: start: 20040401
  6. DISOPYRAMIDE [Concomitant]
     Route: 065
     Dates: start: 20040401

REACTIONS (1)
  - HEPATITIS FULMINANT [None]
